FAERS Safety Report 4998748-3 (Version None)
Quarter: 2006Q2

REPORT INFORMATION
  Report Type: 
  Country: None (occurrence: None)
  Receive Date: 20060509
  Receipt Date: 20060428
  Transmission Date: 20061013
  Serious: Yes (Death)
  Sender: FDA-Public Use
  Company Number: 2004070762

PATIENT
  Age: 26 Year
  Sex: 0

DRUGS (3)
  1. NITROGLYCERIN [Suspect]
     Indication: ILL-DEFINED DISORDER
     Dates: end: 20030101
  2. VENLAFAXINE HCL [Suspect]
     Indication: ILL-DEFINED DISORDER
     Dates: end: 20030101
  3. ETHANOL (ETHANOL) [Suspect]
     Indication: ILL-DEFINED DISORDER
     Dates: end: 20030101

REACTIONS (2)
  - ALCOHOL USE [None]
  - COMPLETED SUICIDE [None]
